FAERS Safety Report 6696277-2 (Version None)
Quarter: 2010Q2

REPORT INFORMATION
  Report Type: 
  Country: None (occurrence: None)
  Receive Date: 20100419
  Receipt Date: 20090629
  Transmission Date: 20101027
  Serious: No
  Sender: FDA-Public Use
  Company Number: 2009-00410

PATIENT
  Age: 45 Year
  Sex: Male
  Weight: 72.5755 kg

DRUGS (1)
  1. ZICAM COLD REMEDY GEL SWABS [Suspect]
     Dosage: 3 DOSES - 3 DOSES, APR-MAY-2009 - 3 DOSES
     Dates: start: 20090101, end: 20090101

REACTIONS (2)
  - AGEUSIA [None]
  - ANOSMIA [None]
